FAERS Safety Report 5099871-8 (Version None)
Quarter: 2006Q3

REPORT INFORMATION
  Report Type: 
  Country: None (occurrence: None)
  Receive Date: 20060906
  Receipt Date: 20060906
  Transmission Date: 20061208
  Serious: No
  Sender: FDA-Public Use
  Company Number: None

PATIENT
  Age: 2 Year
  Sex: Male
  Weight: 12.7007 kg

DRUGS (1)
  1. CEFADROXIL [Suspect]
     Indication: EAR INFECTION
     Dosage: 3/4 TSP   TWICE A DAY
     Dates: start: 20060824, end: 20060902

REACTIONS (1)
  - DRUG HYPERSENSITIVITY [None]
